FAERS Safety Report 11660116 (Version 1)
Quarter: 2015Q4

REPORT INFORMATION
  Report Type: Spontaneous
  Country: US (occurrence: None)
  Receive Date: 20151023
  Receipt Date: 20151023
  Transmission Date: 20160304
  Serious: Yes (Hospitalization)
  Sender: FDA-Public Use
  Company Number: None

PATIENT
  Age: 74 Year
  Sex: Female
  Weight: 74.6 kg

DRUGS (1)
  1. TERIPARATIDE [Suspect]
     Active Substance: TERIPARATIDE
     Indication: OSTEOPOROSIS
     Route: 058
     Dates: start: 20141120, end: 20141122

REACTIONS (8)
  - Nausea [None]
  - Abdominal pain [None]
  - Supraventricular tachycardia [None]
  - Vomiting [None]
  - Heart rate increased [None]
  - Diarrhoea [None]
  - Blood pressure systolic decreased [None]
  - Muscle spasms [None]

NARRATIVE: CASE EVENT DATE: 20141122
